FAERS Safety Report 5274041-9 (Version None)
Quarter: 2007Q1

REPORT INFORMATION
  Report Type: 
  Country: None (occurrence: None)
  Receive Date: 20070323
  Receipt Date: 20070313
  Transmission Date: 20070707
  Serious: Yes (Other)
  Sender: FDA-Public Use
  Company Number: GBWYE833715JUL05

PATIENT
  Age: 9 Year
  Sex: Female
  Weight: 24 kg

DRUGS (5)
  1. ENBREL [Suspect]
     Indication: SARCOIDOSIS
     Route: 058
     Dates: start: 20010725
  2. ENBREL [Suspect]
     Route: 058
  3. METHOTREXATE [Concomitant]
     Indication: SARCOIDOSIS
     Dosage: 10MG FREQUENCY UNKNOWN
     Dates: start: 20010101
  4. MAXIDEX [Concomitant]
     Dosage: UNKNOWN
  5. FELDENE [Concomitant]
     Indication: SARCOIDOSIS
     Dosage: 10MG FREQUENCY UNKNOWN

REACTIONS (3)
  - LOWER RESPIRATORY TRACT INFECTION [None]
  - NAUSEA [None]
  - VOMITING [None]
